FAERS Safety Report 18838975 (Version 4)
Quarter: 2021Q3

REPORT INFORMATION
  Report Type: Spontaneous
  Country: US (occurrence: US)
  Receive Date: 20210203
  Receipt Date: 20210826
  Transmission Date: 20211014
  Serious: Yes (Other)
  Sender: FDA-Public Use
  Company Number: US-PFIZER INC-2021076988

PATIENT
  Age: 63 Year
  Sex: Female

DRUGS (3)
  1. MELOXICAM. [Concomitant]
     Active Substance: MELOXICAM
     Indication: SWELLING
  2. XELJANZ XR [Suspect]
     Active Substance: TOFACITINIB CITRATE
     Indication: RHEUMATOID ARTHRITIS
     Dosage: 11 MG, 1X/DAY
     Route: 048
     Dates: start: 202011, end: 202012
  3. XELJANZ XR [Suspect]
     Active Substance: TOFACITINIB CITRATE
     Dosage: 11 MG, 1X/DAY
     Route: 048
     Dates: start: 20210201, end: 202107

REACTIONS (7)
  - Arthralgia [Not Recovered/Not Resolved]
  - Electrocardiogram abnormal [Unknown]
  - Cartilage injury [Unknown]
  - Gait disturbance [Unknown]
  - Fall [Unknown]
  - Swelling [Unknown]
  - Contraindicated product administered [Unknown]
